FAERS Safety Report 5984926-3 (Version None)
Quarter: 2008Q4

REPORT INFORMATION
  Report Type: 
  Country: None (occurrence: None)
  Receive Date: 20081202
  Receipt Date: 20081121
  Transmission Date: 20090506
  Serious: Yes (Other)
  Sender: FDA-Public Use
  Company Number: 2008GR_BP0718

PATIENT
  Age: 57 Year
  Sex: Female
  Weight: 58 kg

DRUGS (1)
  1. TERBINAFINE HCL [Suspect]
     Dosage: 250 MG (250 MG,1 IN 1 D)
     Route: 048
     Dates: start: 20071115, end: 20071215

REACTIONS (4)
  - ASTHENIA [None]
  - DIARRHOEA HAEMORRHAGIC [None]
  - MYALGIA [None]
  - NEURALGIA [None]
